FAERS Safety Report 9859807 (Version 1)
Quarter: 2014Q1

REPORT INFORMATION
  Report Type: Report from Study
  Country: JP (occurrence: JP)
  Receive Date: 20140131
  Receipt Date: 20140131
  Transmission Date: 20141002
  Serious: Yes (Hospitalization)
  Sender: FDA-Public Use
  Company Number: JP-TAKEDA-2014TJP001017

PATIENT
  Age: 79 Year
  Sex: Female
  Weight: 65 kg

DRUGS (8)
  1. ALOGLIPTIN [Suspect]
     Indication: TYPE 2 DIABETES MELLITUS
     Dosage: 25 MG, QD
     Route: 048
     Dates: start: 20120317
  2. BLOPRESS [Concomitant]
     Dosage: 12 MG, 1 DAYS
     Route: 048
     Dates: start: 20111015
  3. ALDACTONE-A [Concomitant]
     Dosage: 25 MG, 1 DAYS
     Route: 048
     Dates: start: 20111015
  4. REMINYL [Concomitant]
     Dosage: 8 MG,  1 DAYS
     Route: 048
     Dates: start: 20120921, end: 20121020
  5. REMINYL [Concomitant]
     Dosage: 16 MG, 1 DAYS
     Route: 048
     Dates: start: 20121021
  6. LENDORMIN DAINIPPO [Concomitant]
     Dosage: 0.25 MG, 1 DAYS
     Route: 048
     Dates: start: 20121122
  7. CELECOX [Concomitant]
     Dosage: 200 MG, 1 DAYS
     Route: 048
     Dates: start: 20121124
  8. GASTER D [Concomitant]
     Dosage: 20 MG, 1 DAYS
     Route: 048
     Dates: start: 20121124

REACTIONS (2)
  - Cholecystitis [Recovered/Resolved]
  - Renal impairment [Not Recovered/Not Resolved]
